FAERS Safety Report 25794521 (Version 2)
Quarter: 2025Q3

REPORT INFORMATION
  Report Type: Spontaneous
  Country: EU (occurrence: EU)
  Receive Date: 20250912
  Receipt Date: 20250918
  Transmission Date: 20251021
  Serious: Yes (Death)
  Sender: OCTAPHARMA
  Company Number: None

PATIENT
  Age: 80 Year
  Sex: Female

DRUGS (7)
  1. CUTAQUIG [Suspect]
     Active Substance: HUMAN IMMUNOGLOBULIN G
     Indication: Hypogammaglobulinaemia
     Dosage: 60 ML S.C. EVERY 2 WEEKS
     Route: 058
     Dates: start: 2022, end: 20250616
  2. Losartan Orion [Concomitant]
     Indication: Hypertension
     Dosage: 2X1
     Route: 048
     Dates: end: 20250616
  3. VAGIFEM [Concomitant]
     Active Substance: ESTRADIOL
     Indication: Product used for unknown indication
     Route: 067
     Dates: end: 20250616
  4. SIMVASTATIN [Concomitant]
     Active Substance: SIMVASTATIN
     Indication: Dyslipidaemia
     Dosage: 1X1
     Route: 048
     Dates: end: 20250616
  5. PREDNISOLONE [Concomitant]
     Active Substance: PREDNISOLONE
     Indication: Product used for unknown indication
     Dosage: 1X1
     Route: 048
  6. Calcichew D3 Forte sitruuna [Concomitant]
     Indication: Osteoporosis prophylaxis
     Dosage: 1X2
     Route: 048
     Dates: end: 20250616
  7. BISOPROLOL [Concomitant]
     Active Substance: BISOPROLOL
     Indication: Cardiac disorder
     Dosage: 1X2
     Route: 048
     Dates: end: 20250616

REACTIONS (1)
  - Creutzfeldt-Jakob disease [Fatal]

NARRATIVE: CASE EVENT DATE: 20240101
